FAERS Safety Report 5192709-X (Version None)
Quarter: 2006Q4

REPORT INFORMATION
  Report Type: 
  Country: None (occurrence: None)
  Receive Date: 20061228
  Receipt Date: 20060728
  Transmission Date: 20070319
  Serious: Yes (Death, Other)
  Sender: FDA-Public Use
  Company Number: PHHO2006JP12655

PATIENT
  Age: 69 Year
  Sex: Male

DRUGS (14)
  1. URSO [Concomitant]
  2. PREDONINE [Suspect]
     Indication: LIVER TRANSPLANT
     Dosage: 20 MG/DAILY
     Route: 048
  3. PREDONINE [Suspect]
     Dosage: 15 MG/DAILY
     Route: 048
  4. PREDONINE [Suspect]
     Dosage: 10 MG/DAILY
     Route: 048
  5. PREDONINE [Suspect]
     Dosage: 7.5MG/DAILY
     Route: 048
  6. PREDONINE [Suspect]
     Dosage: 10MG/DAILY
     Route: 048
  7. PREDONINE [Suspect]
     Dosage: 5MG/DAILY
     Route: 048
  8. VEEN-F [Concomitant]
  9. BUMINATE [Concomitant]
  10. SULPERAZON [Concomitant]
  11. CELLCEPT [Suspect]
     Indication: LIVER TRANSPLANT
     Dates: start: 20060722
  12. NEORAL [Suspect]
     Indication: LIVER TRANSPLANT
     Dosage: 0.1 - 5.0 MG / DAILY
     Route: 048
     Dates: start: 20060531, end: 20060721
  13. NEORAL [Suspect]
     Dosage: 0.1 - 2.0 MG / DAY
     Route: 048
     Dates: end: 20060824
  14. NEORAL [Suspect]
     Indication: LIVER TRANSPLANT
     Dates: start: 20060928

REACTIONS (10)
  - ALANINE AMINOTRANSFERASE INCREASED [None]
  - ASPARTATE AMINOTRANSFERASE INCREASED [None]
  - BLOOD BILIRUBIN INCREASED [None]
  - DEPRESSED LEVEL OF CONSCIOUSNESS [None]
  - HEPATIC FAILURE [None]
  - HEPATITIS CHOLESTATIC [None]
  - LIVER DISORDER [None]
  - LIVER TRANSPLANT REJECTION [None]
  - THROMBOTIC MICROANGIOPATHY [None]
  - VENOOCCLUSIVE DISEASE [None]
